FAERS Safety Report 8127206-2 (Version None)
Quarter: 2011Q4

REPORT INFORMATION
  Report Type: 
  Country: None (occurrence: None)
  Receive Date: 20111227
  Receipt Date: 20111013
  Transmission Date: 20120403
  Serious: No
  Sender: FDA-Public Use
  Company Number: PHHY2011US22446

PATIENT
  Age: 60 Year
  Sex: Female
  Weight: 54.4 kg

DRUGS (11)
  1. GILENYA [Suspect]
  2. MULTI-VITAMINS [Concomitant]
  3. OXYCONTIN (OXYCODONE HYDROCHLORIDE) --/--/2009 TO ONGOING [Concomitant]
  4. DIPROLENE (BETAMETHASONE DIPROPIONATE) [Concomitant]
  5. CALTRATE (CALCIUM CARBONATE) [Concomitant]
  6. OXYCODONE HCL [Concomitant]
  7. CHANTIX [Concomitant]
  8. MIRALAX [Concomitant]
  9. GILENYA [Suspect]
     Indication: MULTIPLE SCLEROSIS
     Dosage: 0.5 MG, QD, ORAL 0.5 MG;QD
     Route: 048
     Dates: start: 20110228
  10. COLACE (DOCUSATE SODIUM) [Concomitant]
  11. PROVIGIL (MODAFINIL) 04/21/2011 TO ONGOING [Concomitant]

REACTIONS (3)
  - DEPRESSION [None]
  - HEADACHE [None]
  - FATIGUE [None]
